FAERS Safety Report 9645273 (Version 1)
Quarter: 2013Q4

REPORT INFORMATION
  Report Type: Spontaneous
  Country: US (occurrence: None)
  Receive Date: 20131023
  Receipt Date: 20131023
  Transmission Date: 20140711
  Serious: Yes (Hospitalization)
  Sender: FDA-Public Use
  Company Number: 001615649A

PATIENT
  Age: 31 Year
  Sex: Female

DRUGS (3)
  1. PROACTIV SOLUTION RENEWING CLEANSER [Suspect]
     Indication: ACNE
     Dosage: ONCE DAILY DERMAL
     Dates: start: 20131002, end: 20131007
  2. PROACTIV REPAIRING [Suspect]
     Indication: ACNE
     Dosage: ONCE DAILY DERMAL
     Dates: start: 20131002, end: 20131007
  3. PROACTIV SOLUTION DARK SPOT CORRECTOR [Suspect]
     Indication: ACNE
     Dosage: ONCE DAILY DERMAL
     Dates: start: 20131002, end: 20131007

REACTIONS (1)
  - Hypersensitivity [None]
